FAERS Safety Report 5714124-X (Version None)
Quarter: 2008Q2

REPORT INFORMATION
  Report Type: 
  Country: None (occurrence: None)
  Receive Date: 20080422
  Receipt Date: 20080422
  Transmission Date: 20081010
  Serious: Yes (Hospitalization)
  Sender: FDA-Public Use
  Company Number: None

PATIENT
  Age: 85 Year
  Sex: Male

DRUGS (7)
  1. GEMFIBROZIL [Suspect]
     Indication: HYPERLIPIDAEMIA
     Dosage: 600MG BID PO
     Route: 048
     Dates: end: 20071125
  2. SIMVASTATIN [Suspect]
     Indication: CARDIOVASCULAR EVENT PROPHYLAXIS
     Dosage: 80MG DAILY PO
     Route: 048
     Dates: start: 20071015, end: 20071125
  3. SIMVASTATIN [Suspect]
     Indication: HYPERLIPIDAEMIA
     Dosage: 80MG DAILY PO
     Route: 048
     Dates: start: 20071015, end: 20071125
  4. RANITIDINE [Concomitant]
  5. GALANTAMINE [Concomitant]
  6. QUETIAPINE [Concomitant]
  7. SPIRIVA [Concomitant]

REACTIONS (6)
  - DRUG INTERACTION [None]
  - FALL [None]
  - HAEMODIALYSIS [None]
  - HEPATITIS [None]
  - RENAL FAILURE ACUTE [None]
  - RHABDOMYOLYSIS [None]
